FAERS Safety Report 9701413 (Version 2)
Quarter: 2013Q4

REPORT INFORMATION
  Report Type: Spontaneous
  Country: US (occurrence: US)
  Receive Date: 20131121
  Receipt Date: 20131121
  Transmission Date: 20140711
  Serious: No
  Sender: FDA-Public Use
  Company Number: US-GILEAD-2008-0016890

PATIENT
  Age: 50 Year
  Sex: Female
  Weight: 69.85 kg

DRUGS (11)
  1. LETAIRIS [Suspect]
     Indication: PULMONARY ARTERIAL HYPERTENSION
     Route: 048
     Dates: start: 20080522
  2. REVATIO [Concomitant]
     Route: 048
  3. LASIX [Concomitant]
     Route: 048
  4. ZOLOFT [Concomitant]
     Route: 048
  5. ASA [Concomitant]
     Route: 048
  6. TRAZODONE [Concomitant]
     Route: 048
  7. PANTOPRAZOLE [Concomitant]
     Route: 048
  8. CENTRUM SILVER [Concomitant]
     Route: 048
  9. MAGNESIUM [Concomitant]
     Route: 048
  10. SENNA LAXATI [Concomitant]
     Route: 048
  11. OXYGEN [Concomitant]
     Route: 055

REACTIONS (5)
  - Oropharyngeal pain [None]
  - Epistaxis [None]
  - Insomnia [None]
  - Nasal congestion [Not Recovered/Not Resolved]
  - Local swelling [None]
